FAERS Safety Report 4936836-8 (Version None)
Quarter: 2006Q1

REPORT INFORMATION
  Report Type: 
  Country: None (occurrence: None)
  Receive Date: 20060307
  Receipt Date: 20050901
  Transmission Date: 20060701
  Serious: Yes (Other)
  Sender: FDA-Public Use
  Company Number: US-MERCK-0509USA00505

PATIENT
  Age: 68 Year
  Sex: Male
  Weight: 89 kg

DRUGS (3)
  1. VIOXX [Suspect]
     Indication: MONARTHRITIS
     Route: 048
     Dates: start: 20011111, end: 20020709
  2. INDERAL [Concomitant]
     Indication: ESSENTIAL TREMOR
     Route: 065
  3. LIPITOR [Concomitant]
     Route: 065

REACTIONS (4)
  - CEREBROVASCULAR ACCIDENT [None]
  - ESSENTIAL TREMOR [None]
  - HYPERCHOLESTEROLAEMIA [None]
  - HYPERTENSION [None]
